FAERS Safety Report 20064008 (Version 6)
Quarter: 2022Q1

REPORT INFORMATION
  Report Type: Report from Study
  Country: US (occurrence: US)
  Receive Date: 20211112
  Receipt Date: 20220215
  Transmission Date: 20220423
  Serious: Yes (Other)
  Sender: FDA-Public Use
  Company Number: NVSC2021US259348

PATIENT
  Sex: Male

DRUGS (1)
  1. ENTRESTO [Suspect]
     Active Substance: SACUBITRIL\VALSARTAN
     Indication: Product used for unknown indication
     Dosage: 1 DOSAGE FORM, BID (24/26 MG)
     Route: 048
     Dates: start: 20211023

REACTIONS (6)
  - Ejection fraction decreased [Not Recovered/Not Resolved]
  - Insomnia [Recovering/Resolving]
  - Respiratory tract infection [Recovering/Resolving]
  - Cough [Unknown]
  - Hypotension [Recovering/Resolving]
  - Dizziness [Unknown]
